FAERS Safety Report 11990560 (Version 1)
Quarter: 2016Q1

REPORT INFORMATION
  Report Type: Spontaneous
  Country: US (occurrence: US)
  Receive Date: 20160202
  Receipt Date: 20160202
  Transmission Date: 20160526
  Serious: Yes (Death)
  Sender: FDA-Public Use
  Company Number: US-CELGENE-USA-2016014558

PATIENT
  Sex: Female
  Weight: 59.02 kg

DRUGS (1)
  1. VIDAZA [Suspect]
     Active Substance: AZACITIDINE
     Indication: ACUTE MYELOID LEUKAEMIA
     Route: 065
     Dates: start: 20141117, end: 20150213

REACTIONS (1)
  - Acute myeloid leukaemia [Fatal]
